FAERS Safety Report 15907549 (Version 1)
Quarter: 2019Q1

REPORT INFORMATION
  Report Type: Report from Study
  Country: US (occurrence: US)
  Receive Date: 20190204
  Receipt Date: 20190204
  Transmission Date: 20190417
  Serious: Yes (Hospitalization)
  Sender: FDA-Public Use
  Company Number: US-TEVA-2019-US-1006125

PATIENT
  Age: 58 Year
  Sex: Female
  Weight: 84 kg

DRUGS (5)
  1. LEUKOVORIN [Suspect]
     Active Substance: LEUCOVORIN SODIUM
     Indication: COLORECTAL CANCER METASTATIC
     Dosage: 800 MILLIGRAM DAILY; 800 MG IV OVER 2 HOURS
     Route: 042
     Dates: start: 20181102
  2. OXALIPLATIN. [Suspect]
     Active Substance: OXALIPLATIN
     Indication: COLORECTAL CANCER METASTATIC
     Dosage: 130 MILLIGRAM DAILY; 78 MG IV OVER 30 MINUTES
     Route: 042
     Dates: start: 20181102
  3. OXALIPLATIN. [Suspect]
     Active Substance: OXALIPLATIN
     Dosage: 4650 MILLIGRAM DAILY; 4650 MG IV OVER 6 HOURS
     Route: 042
     Dates: start: 20181102
  4. FLUOROURACIL. [Suspect]
     Active Substance: FLUOROURACIL
     Dosage: 4650 MILLIGRAM DAILY; 4650 MG IV OVER 6 HOURS
     Route: 042
     Dates: start: 20181102
  5. FLUOROURACIL. [Suspect]
     Active Substance: FLUOROURACIL
     Indication: COLORECTAL CANCER METASTATIC
     Dosage: 78 MILLIGRAM DAILY; 78 MG IV OVER 30 MINUTES
     Route: 042
     Dates: start: 20181102

REACTIONS (1)
  - Pulmonary embolism [Unknown]

NARRATIVE: CASE EVENT DATE: 20181227
